FAERS Safety Report 7942155-8 (Version None)
Quarter: 2011Q4

REPORT INFORMATION
  Report Type: 
  Country: None (occurrence: None)
  Receive Date: 20111122
  Receipt Date: 20111111
  Transmission Date: 20120403
  Serious: Yes (Hospitalization, Other)
  Sender: FDA-Public Use
  Company Number: 2011MA016561

PATIENT
  Age: 42 Year
  Sex: Female

DRUGS (2)
  1. FEVERALL [Suspect]
     Indication: ANALGESIC THERAPY
     Dosage: 1 GM;IV
     Route: 042
  2. AUGMENTIN '875' [Suspect]
     Dosage: 1.2 G;IV
     Route: 042

REACTIONS (1)
  - ANAPHYLACTIC REACTION [None]
